FAERS Safety Report 8517553-4 (Version None)
Quarter: 2012Q3

REPORT INFORMATION
  Report Type: 
  Country: None (occurrence: None)
  Receive Date: 20120718
  Receipt Date: 20120704
  Transmission Date: 20120928
  Serious: Yes (Death, Life-Threatening)
  Sender: FDA-Public Use
  Company Number: JP-ROCHE-1078331

PATIENT
  Sex: Male

DRUGS (5)
  1. ACTEMRA [Suspect]
     Indication: RHEUMATOID ARTHRITIS
     Route: 041
     Dates: start: 20090619, end: 20100806
  2. ACTEMRA [Suspect]
     Route: 041
     Dates: start: 20101005, end: 20110603
  3. ISONIAZID [Concomitant]
     Indication: ANTIBIOTIC PROPHYLAXIS
     Route: 048
     Dates: start: 20090517
  4. ALLOPURINOL [Concomitant]
     Indication: HYPERURICAEMIA
     Route: 048
  5. ACTEMRA [Suspect]
     Route: 041
     Dates: start: 20110715

REACTIONS (1)
  - LUNG ADENOCARCINOMA [None]
